FAERS Safety Report 9196318 (Version 1)
Quarter: 2013Q1

REPORT INFORMATION
  Report Type: Spontaneous
  Country: US (occurrence: None)
  Receive Date: 20120709
  Receipt Date: 20120709
  Transmission Date: 20140127
  Serious: No
  Sender: FDA-Public Use
  Company Number: 2012HGS-003499

PATIENT
  Age: 31 Year
  Sex: Female
  Weight: 56.7 kg

DRUGS (6)
  1. BENLYSTA [Suspect]
     Indication: SYSTEMIC LUPUS ERYTHEMATOSUS
     Dosage: 1 IN 28 D, INTRAVENOUS
     Route: 042
     Dates: start: 20110826
  2. CELLCEPT (MYCOPHENOLATE MOFETIL) MYCOPHENOLATE MOFETIL) [Concomitant]
  3. PLAQUENIL (HYDROXYCHLOROQUINE PHOSPHATE) (HYDROXYCHLOROQUINE PHOSPHATE) [Concomitant]
  4. CALCIUM WITH VITAMIN D (LEKOVIT CA) (COLECALCIFEROL, CALCIUM CARBONATE) [Concomitant]
  5. MULTIVITAMIN VIGRAN) (ERGOCALCIFEROL, ASCORBIC ACID, PYRIDOXINE HYDROCHLORIDE, THIAMINE HYDROCHLORIDE, RETINOL, RIBOFLAVIN, NICOTINAMIDE, CALCIUM PANTOTHENATE) [Concomitant]
  6. PREDNISONE (PREDNISONE) (PREDNISONE) [Concomitant]

REACTIONS (1)
  - Oropharyngeal pain [None]
